FAERS Safety Report 5918029-0 (Version None)
Quarter: 2008Q4

REPORT INFORMATION
  Report Type: 
  Country: None (occurrence: None)
  Receive Date: 20081014
  Receipt Date: 20080930
  Transmission Date: 20090506
  Serious: Yes (Other)
  Sender: FDA-Public Use
  Company Number: CA-PURDUE-CAN_2008_0000837

PATIENT
  Age: 60 Year
  Sex: Male

DRUGS (12)
  1. OXYCONTIN [Suspect]
     Indication: PAIN
     Dosage: 20 MG, BID
     Route: 048
  2. COVERSYL                           /00790701/ [Concomitant]
     Indication: HYPERTENSION
     Dosage: 8 MG, DAILY
     Route: 048
  3. LOPRESOR                           /00376902/ [Concomitant]
     Indication: HYPERTENSION
     Dosage: 200 MG, DAILY
     Route: 048
  4. PERCOCET [Concomitant]
     Indication: PAIN
     Dosage: SEE TEXT
     Route: 048
  5. MELOXICAM [Concomitant]
     Indication: PAIN
     Dosage: 7.5 MG, BID PRN
     Route: 048
  6. GLYBURIDE [Concomitant]
     Indication: DIABETES MELLITUS
     Dosage: 2.5 MG, DAILY
     Route: 048
  7. LIPITOR [Concomitant]
     Indication: BLOOD CHOLESTEROL INCREASED
     Dosage: 20 MG, DAILY
     Route: 048
  8. PANTOPRAZOLE SODIUM [Concomitant]
     Indication: GASTROINTESTINAL DISORDER
     Dosage: 40 MG, DAILY
     Route: 048
  9. METFORMIN                          /00082702/ [Concomitant]
     Indication: DIABETES MELLITUS
     Dosage: SEE TEXT
     Route: 048
  10. INDAPAMIDE [Concomitant]
     Indication: HYPERTENSION
     Dosage: 1.25 MG, DAILY
     Route: 048
  11. OMEGA-3                            /00931501/ [Concomitant]
     Indication: DRUG USE FOR UNKNOWN INDICATION
     Dosage: 1 TABLET, BID
     Route: 048
  12. ALCOHOL                            /00002101/ [Concomitant]
     Indication: DRUG USE FOR UNKNOWN INDICATION
     Dosage: SEE TEXT
     Route: 048

REACTIONS (4)
  - GLOSSITIS [None]
  - GLOSSODYNIA [None]
  - MUSCULAR WEAKNESS [None]
  - RASH [None]
